FAERS Safety Report 21990591 (Version 2)
Quarter: 2023Q1

REPORT INFORMATION
  Report Type: Spontaneous
  Country: US (occurrence: US)
  Receive Date: 20230214
  Receipt Date: 20230306
  Transmission Date: 20230418
  Serious: No
  Sender: FDA-Public Use
  Company Number: US-PFIZER INC-PV202300025516

PATIENT
  Age: 82 Year
  Sex: Female
  Weight: 106.14 kg

DRUGS (2)
  1. IBRANCE [Suspect]
     Active Substance: PALBOCICLIB
     Dosage: 125 MG, CYCLIC (21 DAYS THEN I AM OFF 7 DAYS)
  2. EXEMESTANE [Suspect]
     Active Substance: EXEMESTANE
     Indication: Hormone therapy
     Dosage: 25 MG

REACTIONS (5)
  - Gingival pain [Unknown]
  - Oral pruritus [Unknown]
  - Gingival swelling [Unknown]
  - Stomatitis [Unknown]
  - Neoplasm progression [Unknown]
